FAERS Safety Report 6119787-5 (Version None)
Quarter: 2009Q1

REPORT INFORMATION
  Report Type: 
  Country: None (occurrence: None)
  Receive Date: 20090316
  Receipt Date: 20090304
  Transmission Date: 20090719
  Serious: Yes (Hospitalization, Other)
  Sender: FDA-Public Use
  Company Number: GB-PFIZER INC-2009179704

PATIENT

DRUGS (6)
  1. ARTHROTEC [Suspect]
     Indication: HEADACHE
     Route: 048
     Dates: start: 20090106, end: 20090107
  2. ACTIFED [Concomitant]
  3. BECLOMETASONE DIPROPIONATE [Concomitant]
  4. CO-DYDRAMOL [Concomitant]
  5. LANSOPRAZOLE [Concomitant]
  6. SALBUTAMOL SULFATE [Concomitant]

REACTIONS (4)
  - BALANCE DISORDER [None]
  - POOR PERIPHERAL CIRCULATION [None]
  - SYNCOPE [None]
  - VISION BLURRED [None]
